FAERS Safety Report 25491911 (Version 4)
Quarter: 2025Q4

REPORT INFORMATION
  Report Type: Spontaneous
  Country: US (occurrence: US)
  Receive Date: 20250630
  Receipt Date: 20251211
  Transmission Date: 20260117
  Serious: Yes (Other)
  Sender: SANOFI AVENTIS
  Company Number: US-SA-2025SA181313

PATIENT
  Age: 64 Year
  Sex: Female

DRUGS (5)
  1. KEVZARA [Interacting]
     Active Substance: SARILUMAB
     Indication: Rheumatoid arthritis
     Dosage: 200 MG, QOW
     Route: 058
  2. KEVZARA [Interacting]
     Active Substance: SARILUMAB
     Dosage: 200 MG, QW
     Route: 058
  3. OMEPRAZOLE [Interacting]
     Active Substance: OMEPRAZOLE
     Dosage: UNK
  4. ATENOLOL [Concomitant]
     Active Substance: ATENOLOL
     Indication: Blood pressure abnormal
     Dosage: UNK
  5. METHOTREXATE [Concomitant]
     Active Substance: METHOTREXATE
     Dosage: UNK

REACTIONS (12)
  - Rheumatoid arthritis [Unknown]
  - Musculoskeletal stiffness [Unknown]
  - Arthralgia [Unknown]
  - Joint swelling [Unknown]
  - Pain in extremity [Unknown]
  - Osteopenia [Unknown]
  - Drug interaction [Unknown]
  - Mouth ulceration [Unknown]
  - Illness [Unknown]
  - Herpes zoster [Unknown]
  - Off label use [Unknown]
  - Therapeutic response unexpected [Unknown]

NARRATIVE: CASE EVENT DATE: 20250101
